FAERS Safety Report 14456137 (Version 1)
Quarter: 2018Q1

REPORT INFORMATION
  Report Type: Spontaneous
  Country: FR (occurrence: FR)
  Receive Date: 20180130
  Receipt Date: 20180130
  Transmission Date: 20180509
  Serious: Yes (Life-Threatening)
  Sender: FDA-Public Use
  Company Number: FR-CIPLA LTD.-2018FR01915

PATIENT

DRUGS (4)
  1. GARDENAL                           /00023201/ [Suspect]
     Active Substance: PHENOBARBITAL
     Indication: EPILEPSY
     Dosage: 20 DF, IN TOTAL
     Route: 048
     Dates: start: 20171014, end: 20171014
  2. SERTRALINE [Suspect]
     Active Substance: SERTRALINE HYDROCHLORIDE
     Indication: DEPRESSION
     Dosage: 175MG, IN TOTAL
     Route: 048
     Dates: start: 20171014, end: 20171014
  3. FELODIPINE. [Suspect]
     Active Substance: FELODIPINE
     Indication: HYPERTENSION
     Dosage: 150 MG, IN TOTAL
     Route: 048
     Dates: start: 20171014, end: 20171014
  4. SERESTA [Suspect]
     Active Substance: OXAZEPAM
     Indication: ANXIOLYTIC THERAPY
     Dosage: 30 DF, IN TOTAL
     Route: 048
     Dates: start: 20171014, end: 20171014

REACTIONS (4)
  - Toxicity to various agents [Recovering/Resolving]
  - Coma [Recovering/Resolving]
  - Respiratory distress [Recovering/Resolving]
  - Poisoning deliberate [Recovering/Resolving]

NARRATIVE: CASE EVENT DATE: 20171014
